FAERS Safety Report 20550774 (Version 2)
Quarter: 2022Q2

REPORT INFORMATION
  Report Type: Report from Study
  Country: US (occurrence: None)
  Receive Date: 20220304
  Receipt Date: 20220421
  Transmission Date: 20220721
  Serious: Yes (Other)
  Sender: FDA-Public Use
  Company Number: US-Merck Healthcare KGaA-9303405

PATIENT
  Sex: Female

DRUGS (2)
  1. REBIF [Suspect]
     Active Substance: INTERFERON BETA-1A
     Indication: Multiple sclerosis
     Dosage: PREVIOUSLY REBIJECT II?REBIF PRE FILLED SYRINGE
     Dates: start: 201002, end: 201305
  2. REBIF [Suspect]
     Active Substance: INTERFERON BETA-1A
     Dosage: PREVIOUSLY REBIJECT II?REBIF PRE FILLED SYRINGE
     Dates: start: 20131122

REACTIONS (1)
  - Crohn^s disease [Recovering/Resolving]
